FAERS Safety Report 8901196 (Version 3)
Quarter: 2013Q3

REPORT INFORMATION
  Report Type: Spontaneous
  Country: US (occurrence: US)
  Receive Date: 20121108
  Receipt Date: 20130721
  Transmission Date: 20140515
  Serious: Yes (Death, Other)
  Sender: FDA-Public Use
  Company Number: US-009507513-1010USA02926B1

PATIENT
  Sex: Male
  Weight: 2.48 kg

DRUGS (8)
  1. ISENTRESS [Suspect]
     Dosage: 800 MG, QD
     Route: 064
  2. ISENTRESS [Suspect]
     Dosage: 2 TOTAL DAILY DOSE
  3. TRUVADA [Suspect]
     Dosage: 1 DF, QD
     Route: 064
  4. KALETRA [Suspect]
     Dosage: 5 DF, QD
     Route: 064
  5. KALETRA [Suspect]
     Dosage: 4 TOTAL DAILY DOSE
  6. LAMIVUDINE (+) ZIDOVUDINE [Suspect]
     Dosage: 2 TOTAL DAILY DOSE
     Route: 064
  7. ZIDOVUDINE [Suspect]
     Dosage: 2 TOTAL DAILY DOSE
     Route: 064
  8. ZIDOVUDINE [Suspect]
     Dosage: 1 TOTAL DAILY DOSE

REACTIONS (3)
  - Foetal disorder [Fatal]
  - Foetal growth restriction [Fatal]
  - Foetal exposure during pregnancy [Fatal]
